FAERS Safety Report 9412479 (Version 1)
Quarter: 2013Q3

REPORT INFORMATION
  Report Type: Spontaneous
  Country: CO (occurrence: CO)
  Receive Date: 20130722
  Receipt Date: 20130722
  Transmission Date: 20140515
  Serious: Yes (Life-Threatening, Hospitalization, Disabling)
  Sender: FDA-Public Use
  Company Number: CO-B.I. PHARMACEUTICALS,INC./RIDGEFIELD-2013-RA-00207RA

PATIENT
  Age: 89 Year
  Sex: Female
  Weight: 69 kg

DRUGS (3)
  1. PRADAXA [Suspect]
     Indication: ATRIAL FIBRILLATION
     Dosage: 220 MG
     Route: 048
     Dates: start: 201302, end: 20130709
  2. METOPROLOL [Concomitant]
     Indication: HYPERTENSION
     Route: 048
  3. LOSARTAN [Concomitant]
     Indication: HYPERTENSION
     Route: 048

REACTIONS (1)
  - Ischaemic stroke [Not Recovered/Not Resolved]
